FAERS Safety Report 8191235-3 (Version None)
Quarter: 2012Q1

REPORT INFORMATION
  Report Type: 
  Country: None (occurrence: None)
  Receive Date: 20120221
  Receipt Date: 20120109
  Transmission Date: 20120608
  Serious: No
  Sender: FDA-Public Use
  Company Number: 049341

PATIENT

DRUGS (4)
  1. LACOSAMIDE [Suspect]
     Dosage: (50 MG BID)
  2. KEPPRA [Suspect]
  3. PHENOBARBITAL TAB [Suspect]
  4. DEPAKOTE [Suspect]

REACTIONS (2)
  - FATIGUE [None]
  - LETHARGY [None]
